FAERS Safety Report 20372109 (Version 2)
Quarter: 2022Q1

REPORT INFORMATION
  Report Type: Spontaneous
  Country: IT (occurrence: IT)
  Receive Date: 20220124
  Receipt Date: 20220222
  Transmission Date: 20220423
  Serious: Yes (Life-Threatening, Hospitalization, Other)
  Sender: FDA-Public Use
  Company Number: IT-009507513-2201ITA004322

PATIENT
  Age: 71 Year
  Sex: Male

DRUGS (2)
  1. PEMBROLIZUMAB [Suspect]
     Active Substance: PEMBROLIZUMAB
     Indication: Lung adenocarcinoma
     Dosage: 200 MILLIGRAM, Q3, FIRST CYCLE
     Dates: start: 20180426, end: 20180426
  2. TAPAZOLE [Concomitant]
     Active Substance: METHIMAZOLE
     Indication: Basedow^s disease

REACTIONS (3)
  - Vanishing bile duct syndrome [Unknown]
  - Immune-mediated hepatitis [Unknown]
  - Drug-induced liver injury [Unknown]

NARRATIVE: CASE EVENT DATE: 20180101
